FAERS Safety Report 5978905-X (Version None)
Quarter: 2008Q4

REPORT INFORMATION
  Report Type: 
  Country: None (occurrence: None)
  Receive Date: 20081204
  Receipt Date: 20080310
  Transmission Date: 20090506
  Serious: No
  Sender: FDA-Public Use
  Company Number: US-AMGEN-KDL267862

PATIENT
  Sex: Female
  Weight: 81.7 kg

DRUGS (7)
  1. ENBREL [Suspect]
     Indication: PSORIASIS
     Route: 058
     Dates: start: 20080226
  2. DILTIAZEM [Concomitant]
  3. FLUOXETINE HYDROCHLORIDE [Concomitant]
  4. CHROMAGEN FORTE [Concomitant]
  5. ADIPEX [Concomitant]
  6. LIDEX [Concomitant]
  7. UNSPECIFIED TOPICAL PRODUCT [Concomitant]

REACTIONS (3)
  - INJECTION SITE ERYTHEMA [None]
  - INJECTION SITE SWELLING [None]
  - INJECTION SITE WARMTH [None]
